FAERS Safety Report 7713591-X (Version None)
Quarter: 2011Q3

REPORT INFORMATION
  Report Type: 
  Country: None (occurrence: None)
  Receive Date: 20110826
  Receipt Date: 20110819
  Transmission Date: 20111222
  Serious: Yes (Other)
  Sender: FDA-Public Use
  Company Number: FR-PFIZER INC-2011191627

PATIENT
  Age: 44 Year
  Sex: Male

DRUGS (4)
  1. NO SUBJECT DRUG [Suspect]
     Dosage: NO DOSE GIVEN
  2. BUSULFAN [Concomitant]
     Dosage: 6 MG/ML
  3. CYCLOPHOSPHAMIDE [Concomitant]
  4. VFEND [Suspect]
     Dosage: UNK
     Dates: start: 20081120, end: 20090223

REACTIONS (2)
  - CHOLESTASIS [None]
  - CYTOLYTIC HEPATITIS [None]
